FAERS Safety Report 8914924 (Version 1)
Quarter: 2012Q4

REPORT INFORMATION
  Report Type: 
  Country: FR (occurrence: FR)
  Receive Date: 20121119
  Receipt Date: 20121119
  Transmission Date: 20130627
  Serious: Yes (Hospitalization, Other)
  Sender: FDA-Public Use
  Company Number: FR-ABBOTT-12P-056-1008153-00

PATIENT
  Age: 33 Year
  Sex: Male

DRUGS (4)
  1. NORVIR [Suspect]
     Indication: HIV INFECTION
     Route: 048
     Dates: start: 20110908, end: 20120924
  2. REYATAZ [Suspect]
     Indication: HIV INFECTION
     Route: 048
     Dates: start: 20110908, end: 20120924
  3. TRUVADA [Concomitant]
     Indication: HIV INFECTION
     Dates: start: 20110908
  4. COLECALCIFEROL [Concomitant]
     Indication: VITAMIN D DEFICIENCY
     Dosage: 100 000 ui
     Dates: start: 20110121

REACTIONS (4)
  - Renal colic [Recovered/Resolved]
  - Groin pain [Unknown]
  - Scrotal pain [Unknown]
  - Back pain [Unknown]
